FAERS Safety Report 9903640 (Version 2)
Quarter: 2014Q1

REPORT INFORMATION
  Report Type: Report from Study
  Country: CA (occurrence: CA)
  Receive Date: 20140217
  Receipt Date: 20140306
  Transmission Date: 20141002
  Serious: Yes (Hospitalization, Other)
  Sender: FDA-Public Use
  Company Number: CA-ABBVIE-14P-028-1200716-00

PATIENT
  Sex: Female

DRUGS (3)
  1. HUMIRA [Suspect]
     Indication: CROHN^S DISEASE
     Route: 058
     Dates: start: 20080920, end: 2013
  2. HUMIRA [Suspect]
     Route: 058
     Dates: start: 2013
  3. METHOTREXATE [Concomitant]
     Indication: PRODUCT USED FOR UNKNOWN INDICATION

REACTIONS (6)
  - Intestinal obstruction [Recovered/Resolved]
  - Small intestinal stenosis [Recovered/Resolved]
  - Ileal ulcer [Recovered/Resolved]
  - Small intestinal stenosis [Recovered/Resolved]
  - Enteritis [Unknown]
  - Crohn^s disease [Unknown]
